FAERS Safety Report 9605937 (Version 1)
Quarter: 2013Q4

REPORT INFORMATION
  Report Type: Spontaneous
  Country: GB (occurrence: GB)
  Receive Date: 20131008
  Receipt Date: 20131008
  Transmission Date: 20140711
  Serious: Yes (Hospitalization, Other)
  Sender: FDA-Public Use
  Company Number: GB-WATSON-2013-17928

PATIENT
  Age: 75 Year
  Sex: Male

DRUGS (7)
  1. PIOGLITAZONE (UNKNOWN) [Suspect]
     Indication: DIABETES MELLITUS
     Dosage: UNK, UNK
     Route: 065
     Dates: end: 20121218
  2. ADENURIC [Suspect]
     Indication: URATE NEPHROPATHY
     Dosage: UNK, UNK
     Route: 048
     Dates: start: 20120903, end: 20121014
  3. ARANESP [Concomitant]
     Indication: PRODUCT USED FOR UNKNOWN INDICATION
     Dosage: UNK, UNK
     Route: 065
  4. ATORVASTATIN (UNKNOWN) [Concomitant]
     Indication: HYPERLIPIDAEMIA
     Dosage: 40 MG, DAILY
     Route: 048
     Dates: end: 20121218
  5. COLCHICINE [Concomitant]
     Indication: PRODUCT USED FOR UNKNOWN INDICATION
     Dosage: 500 U/G, DAILY
     Route: 065
  6. FUROSEMIDE (UNKNOWN) [Concomitant]
     Indication: PRODUCT USED FOR UNKNOWN INDICATION
     Dosage: 40 MG, DAILY
     Route: 065
  7. MAXITROL [Concomitant]
     Indication: PRODUCT USED FOR UNKNOWN INDICATION
     Dosage: UNK, UNK
     Route: 065

REACTIONS (4)
  - Liver disorder [Unknown]
  - Jaundice cholestatic [Unknown]
  - Oedema peripheral [Unknown]
  - Dyspnoea [Unknown]
